FAERS Safety Report 16835220 (Version 1)
Quarter: 2019Q3

REPORT INFORMATION
  Report Type: Spontaneous
  Country: DK (occurrence: DK)
  Receive Date: 20190920
  Receipt Date: 20190920
  Transmission Date: 20191005
  Serious: Yes (Other)
  Sender: FDA-Public Use
  Company Number: DK-009507513-1909DNK006327

PATIENT
  Age: 67 Year
  Sex: Female

DRUGS (2)
  1. ALENDRONATE SODIUM AND CHOLECALCIFEROL, MSD [Suspect]
     Active Substance: ALENDRONATE SODIUM\CHOLECALCIFEROL
     Indication: OSTEOPOROSIS
     Dosage: 70 MILLIGRAM, QW
     Route: 048
     Dates: start: 201212
  2. ZOMETA [Suspect]
     Active Substance: ZOLEDRONIC ACID
     Indication: PLASMA CELL MYELOMA
     Dosage: DOSE: FOR SOME PERIODS, ONE INJECTION PER MONTH, STRENGTH: 4 MG
     Route: 042
     Dates: start: 201705, end: 201802

REACTIONS (3)
  - Osteonecrosis of jaw [Recovering/Resolving]
  - Peri-implantitis [Unknown]
  - Jaw operation [Unknown]

NARRATIVE: CASE EVENT DATE: 2018
